FAERS Safety Report 8889314 (Version 2)
Quarter: 2013Q1

REPORT INFORMATION
  Report Type: Report from Study
  Country: DE (occurrence: DE)
  Receive Date: 20121106
  Receipt Date: 20130201
  Transmission Date: 20140127
  Serious: Yes (Hospitalization)
  Sender: FDA-Public Use
  Company Number: DE-UCBSA-048449

PATIENT
  Age: 69 Year
  Sex: Male
  Weight: 95 kg

DRUGS (6)
  1. COMP/LACOSAMIDE [Suspect]
     Indication: EPILEPSY
     Dosage: UNKNOWN DOSE
  2. RAMIPRIL [Concomitant]
     Indication: HYPERTENSION
     Route: 048
     Dates: start: 201104
  3. ASS [Concomitant]
     Indication: CORONARY ARTERY DISEASE
     Route: 048
     Dates: start: 201104
  4. SIMVASTATIN [Concomitant]
     Indication: HYPERLIPIDAEMIA
     Route: 048
     Dates: start: 201104
  5. PANTOZOL [Concomitant]
     Indication: PROPHYLAXIS AGAINST GASTROINTESTINAL ULCER
     Route: 048
     Dates: start: 201104
  6. BELOC ZOK [Concomitant]
     Indication: HYPERTENSION
     Route: 048
     Dates: start: 201104

REACTIONS (2)
  - Atrial fibrillation [Recovered/Resolved with Sequelae]
  - Oedema peripheral [Recovered/Resolved]
